FAERS Safety Report 18357571 (Version 1)
Quarter: 2020Q4

REPORT INFORMATION
  Report Type: Spontaneous
  Country: GB (occurrence: GB)
  Receive Date: 20201007
  Receipt Date: 20201007
  Transmission Date: 20210114
  Serious: Yes (Other)
  Sender: FDA-Public Use
  Company Number: GB-PERRIGO-20GB013942

PATIENT

DRUGS (3)
  1. NORZOL 40MG/ML PL00427/0068 [Suspect]
     Active Substance: METRONIDAZOLE BENZOATE
     Indication: GINGIVITIS
     Route: 048
     Dates: start: 20200902, end: 20200906
  2. PARACETAMOL [Concomitant]
     Active Substance: ACETAMINOPHEN
  3. MEFENAMIC ACID. [Concomitant]
     Active Substance: MEFENAMIC ACID

REACTIONS (7)
  - Nausea [Not Recovered/Not Resolved]
  - Feeling abnormal [Not Recovered/Not Resolved]
  - Anxiety [Not Recovered/Not Resolved]
  - Decreased appetite [Not Recovered/Not Resolved]
  - Ear congestion [Not Recovered/Not Resolved]
  - Neck pain [Not Recovered/Not Resolved]
  - Depression [Not Recovered/Not Resolved]

NARRATIVE: CASE EVENT DATE: 20200902
